FAERS Safety Report 5574023-3 (Version None)
Quarter: 2007Q4

REPORT INFORMATION
  Report Type: 
  Country: None (occurrence: None)
  Receive Date: 20071221
  Receipt Date: 20071127
  Transmission Date: 20080405
  Serious: Yes (Hospitalization)
  Sender: FDA-Public Use
  Company Number: PAR_01821_2007

PATIENT
  Age: 39 Year
  Sex: Female

DRUGS (5)
  1. IBUPROFEN [Suspect]
     Indication: DRUG USE FOR UNKNOWN INDICATION
     Dosage: 600 MG TID,
  2. ACETAMINOPHEN [Suspect]
     Indication: DRUG USE FOR UNKNOWN INDICATION
     Dosage: 1000 MG QID,
  3. NONSTERODIAL ANTIRHEUMATICS [Concomitant]
  4. ANTIHISTAMINES [Concomitant]
  5. PENCILLIN NOS [Concomitant]

REACTIONS (13)
  - ACUTE HEPATIC FAILURE [None]
  - ARTHRALGIA [None]
  - CHOLANGITIS [None]
  - DYSPHAGIA [None]
  - HEPATIC NECROSIS [None]
  - HEPATITIS [None]
  - HEPATOSPLENOMEGALY [None]
  - JUVENILE ARTHRITIS [None]
  - LEUKOCYTOSIS [None]
  - LYMPHADENOPATHY [None]
  - MYALGIA [None]
  - RASH MACULO-PAPULAR [None]
  - SERUM FERRITIN INCREASED [None]
